FAERS Safety Report 8735500 (Version 2)
Quarter: 2012Q4

REPORT INFORMATION
  Report Type: 
  Country: IT (occurrence: IT)
  Receive Date: 20120822
  Receipt Date: 20120910
  Transmission Date: 20130627
  Serious: Yes (Hospitalization)
  Sender: FDA-Public Use
  Company Number: PHHY2012IT070921

PATIENT
  Age: 38 Year
  Sex: Male

DRUGS (2)
  1. TOLEP [Suspect]
     Dosage: 7 DF, UNK
     Route: 048
     Dates: start: 20120422, end: 20120422
  2. ZYPREXA [Suspect]
     Dosage: 4 DF, UNK
     Route: 048
     Dates: start: 20120422, end: 20120422

REACTIONS (12)
  - Suicide attempt [Recovered/Resolved]
  - Presyncope [Recovered/Resolved]
  - Blood chloride decreased [Recovered/Resolved]
  - Blood cholinesterase decreased [Recovered/Resolved]
  - Blood creatine phosphokinase increased [Recovered/Resolved]
  - Aggression [Recovered/Resolved]
  - Intentional overdose [Recovered/Resolved]
  - Alanine aminotransferase increased [Recovered/Resolved]
  - Aspartate aminotransferase increased [Recovered/Resolved]
  - Gamma-glutamyltransferase increased [Recovered/Resolved]
  - Blood sodium decreased [Recovered/Resolved]
  - Overdose [None]
